FAERS Safety Report 7526718-X (Version None)
Quarter: 2011Q2

REPORT INFORMATION
  Report Type: 
  Country: None (occurrence: None)
  Receive Date: 20110606
  Receipt Date: 20110531
  Transmission Date: 20111010
  Serious: Yes (Other)
  Sender: FDA-Public Use
  Company Number: CHPA2011US07424

PATIENT
  Age: 62 Year
  Sex: Male
  Weight: 115.65 kg

DRUGS (2)
  1. VOLTAREN [Suspect]
     Indication: OSTEOARTHRITIS
  2. VOLTAREN [Suspect]
     Indication: FIBROSIS
     Dosage: UNK, UNK
     Route: 061

REACTIONS (4)
  - APPLICATION SITE RASH [None]
  - OFF LABEL USE [None]
  - HYPERSENSITIVITY [None]
  - KNEE ARTHROPLASTY [None]
